FAERS Safety Report 5321088-X (Version None)
Quarter: 2007Q2

REPORT INFORMATION
  Report Type: 
  Country: None (occurrence: None)
  Receive Date: 20070504
  Receipt Date: 20070424
  Transmission Date: 20071010
  Serious: Yes (Hospitalization, Other)
  Sender: FDA-Public Use
  Company Number: 2006SP000061

PATIENT
  Age: 17 Year
  Sex: Female
  Weight: 84 kg

DRUGS (2)
  1. POSACONAZOLE [Suspect]
     Indication: FUNGAL INFECTION
     Dosage: 400 MG; BID; PO
     Route: 048
     Dates: start: 20060703, end: 20060810
  2. EPINEPHRINE [Suspect]
     Indication: MEDICATION ERROR
     Dosage: .5 MGL; ONCE; SC
     Route: 058
     Dates: start: 20060810, end: 20060810

REACTIONS (3)
  - ELECTROCARDIOGRAM QT CORRECTED INTERVAL PROLONGED [None]
  - PALPITATIONS [None]
  - TACHYARRHYTHMIA [None]
